FAERS Safety Report 7960874-4 (Version None)
Quarter: 2011Q4

REPORT INFORMATION
  Report Type: 
  Country: None (occurrence: None)
  Receive Date: 20111121
  Receipt Date: 20110729
  Transmission Date: 20120403
  Serious: Yes (Other)
  Sender: FDA-Public Use
  Company Number: 2011-00828

PATIENT
  Age: 69 Year
  Sex: Male
  Weight: 127.0072 kg

DRUGS (3)
  1. AMLODIPINE [Concomitant]
  2. SULFAMETHOXAZOLE AND TRIMETHOPRIM [Concomitant]
  3. LISINOPRIL AND HYDROCHLOROTHIAZIDE [Suspect]
     Indication: HYPERTENSION
     Dosage: 20/25MG (DAILY), PER ORAL
     Route: 048
     Dates: start: 20110524, end: 20110601

REACTIONS (3)
  - HEART RATE IRREGULAR [None]
  - SYNCOPE [None]
  - HYPERTENSION [None]
